FAERS Safety Report 6959348-9 (Version None)
Quarter: 2010Q3

REPORT INFORMATION
  Report Type: 
  Country: None (occurrence: None)
  Receive Date: 20100831
  Receipt Date: 20100831
  Transmission Date: 20110219
  Serious: Yes (Life-Threatening)
  Sender: FDA-Public Use
  Company Number: None

PATIENT
  Age: 41 Year
  Sex: Female
  Weight: 74.3899 kg

DRUGS (1)
  1. BACTRIM [Suspect]
     Indication: FUNGAL INFECTION
     Dosage: TWICE DAILY
     Dates: start: 20100527, end: 20100604

REACTIONS (10)
  - DEHYDRATION [None]
  - EYE SWELLING [None]
  - GLOSSODYNIA [None]
  - HEADACHE [None]
  - HYPERSENSITIVITY [None]
  - PAIN [None]
  - PYREXIA [None]
  - RASH MACULO-PAPULAR [None]
  - SKIN EXFOLIATION [None]
  - SWOLLEN TONGUE [None]
